FAERS Safety Report 17475064 (Version 1)
Quarter: 2020Q1

REPORT INFORMATION
  Report Type: Report from Study
  Country: IE (occurrence: IE)
  Receive Date: 20200228
  Receipt Date: 20200228
  Transmission Date: 20200409
  Serious: Yes (Other)
  Sender: FDA-Public Use
  Company Number: IE-JNJFOC-20190814999

PATIENT
  Sex: Female

DRUGS (9)
  1. IMODIUM [Concomitant]
     Active Substance: LOPERAMIDE HYDROCHLORIDE
     Route: 050
  2. SIMVASTATIN. [Concomitant]
     Active Substance: SIMVASTATIN
     Route: 050
  3. COLECALCIFEROL [Concomitant]
     Active Substance: CHOLECALCIFEROL
     Dosage: 1600 UNITS
     Route: 050
  4. STELARA [Suspect]
     Active Substance: USTEKINUMAB
     Indication: PSORIASIS
     Route: 058
     Dates: start: 20120223
  5. DILZEM [Concomitant]
     Active Substance: DILTIAZEM
     Route: 050
  6. FEXOFENADINE [Concomitant]
     Active Substance: FEXOFENADINE HYDROCHLORIDE
     Route: 050
  7. MONTELUKAST [Concomitant]
     Active Substance: MONTELUKAST SODIUM
     Route: 050
  8. LOSARTAN. [Concomitant]
     Active Substance: LOSARTAN
     Route: 050
  9. LANSOPRAZOLE. [Concomitant]
     Active Substance: LANSOPRAZOLE
     Route: 050

REACTIONS (1)
  - Diverticulitis [Not Recovered/Not Resolved]
